FAERS Safety Report 7685355-7 (Version None)
Quarter: 2011Q3

REPORT INFORMATION
  Report Type: 
  Country: None (occurrence: None)
  Receive Date: 20110816
  Receipt Date: 20110805
  Transmission Date: 20111222
  Serious: Yes (Hospitalization)
  Sender: FDA-Public Use
  Company Number: KR-ASTRAZENECA-2011SE47667

PATIENT
  Age: 56 Year
  Sex: Male

DRUGS (7)
  1. RABEPRAZOLE SODIUM [Concomitant]
     Dates: start: 20110601
  2. MAGNESIUM-DIMECROTATE [Concomitant]
     Dates: start: 20090201
  3. LACTOBACILLUS RHAMNOSUS R0011 AND LACTOBACILLUS ACLDOPHILUS R0052 [Concomitant]
     Dates: start: 20090201
  4. IRESSA [Suspect]
     Indication: NON-SMALL CELL LUNG CANCER
     Route: 048
     Dates: start: 20110622
  5. VORINOSTAT [Suspect]
     Indication: NON-SMALL CELL LUNG CANCER
     Route: 048
     Dates: start: 20110622
  6. BIPHENYL-DIMETHYL-DICAROBOXYLATE [Concomitant]
     Dates: start: 20090201
  7. BEECOM [Concomitant]
     Dates: start: 20090201

REACTIONS (3)
  - NAUSEA [None]
  - HEADACHE [None]
  - DIZZINESS [None]
